FAERS Safety Report 5948214-3 (Version None)
Quarter: 2008Q4

REPORT INFORMATION
  Report Type: 
  Country: None (occurrence: None)
  Receive Date: 20081110
  Receipt Date: 20081110
  Transmission Date: 20090506
  Serious: Yes (Life-Threatening, Hospitalization)
  Sender: FDA-Public Use
  Company Number: None

PATIENT
  Age: 51 Year
  Sex: Female
  Weight: 113.3993 kg

DRUGS (2)
  1. CHANTIX [Suspect]
     Indication: SMOKING CESSATION THERAPY
     Dosage: 2XADAY
     Dates: start: 20080619, end: 20080719
  2. CHANTIX [Suspect]
     Indication: SMOKING CESSATION THERAPY
     Dosage: 2XADAY
     Dates: start: 20080810, end: 20080827

REACTIONS (5)
  - ABNORMAL DREAMS [None]
  - CRYING [None]
  - HEPATIC FAILURE [None]
  - RENAL FAILURE [None]
  - SUICIDAL IDEATION [None]
